FAERS Safety Report 8083926-X (Version None)
Quarter: 2012Q1

REPORT INFORMATION
  Report Type: 
  Country: None (occurrence: None)
  Receive Date: 20120128
  Receipt Date: 20110114
  Transmission Date: 20120608
  Serious: No
  Sender: FDA-Public Use
  Company Number: US-ABBOTT-11P-163-0697387-00

PATIENT
  Sex: Female
  Weight: 90.8 kg

DRUGS (14)
  1. MULTI-VITAMIN [Concomitant]
     Indication: VITAMIN SUPPLEMENTATION
     Route: 048
  2. FISH OIL [Concomitant]
     Indication: PRODUCT USED FOR UNKNOWN INDICATION
     Route: 048
  3. HUMIRA [Suspect]
     Indication: RHEUMATOID ARTHRITIS
     Route: 058
     Dates: start: 20090701, end: 20110101
  4. SYNTHROID [Concomitant]
     Indication: THYROIDECTOMY
     Dosage: 1/2 TAB 5 DAYS, 1 TAB 2 DAYS A WEEK
     Route: 048
  5. VASOTEC [Concomitant]
     Indication: HYPERTENSION
     Route: 048
  6. PROVENTIL [Concomitant]
     Indication: BRONCHITIS CHRONIC
     Dosage: AVERAGE 1 INHALATION WEEKLY AS NEEDED
     Route: 055
  7. HUMIRA [Suspect]
     Route: 058
     Dates: start: 20110108
  8. METHOTREXATE [Concomitant]
     Indication: RHEUMATOID ARTHRITIS
     Route: 058
     Dates: start: 19910101
  9. VITAMIN D [Concomitant]
     Indication: VITAMIN SUPPLEMENTATION
     Route: 048
  10. CALCIUM [Concomitant]
     Indication: MINERAL SUPPLEMENTATION
     Dosage: 1-2 DAILY
     Route: 048
  11. FOSAMAX [Concomitant]
     Indication: OSTEOPOROSIS
     Route: 048
  12. PLAQUENIL [Concomitant]
     Indication: RHEUMATOID ARTHRITIS
     Route: 048
  13. FOLIC ACID [Concomitant]
     Indication: VITAMIN SUPPLEMENTATION
     Route: 048
  14. HYDROCHLOROTHIAZIDE [Concomitant]
     Indication: HYPERTENSION
     Route: 048

REACTIONS (2)
  - HEPATIC ENZYME INCREASED [None]
  - PULMONARY FUNCTION TEST DECREASED [None]
